FAERS Safety Report 4558867-2 (Version None)
Quarter: 2005Q1

REPORT INFORMATION
  Report Type: 
  Country: None (occurrence: None)
  Receive Date: 20050121
  Receipt Date: 20041217
  Transmission Date: 20050727
  Serious: Yes (Hospitalization, Disabling)
  Sender: FDA-Public Use
  Company Number: JP-MERCK-0412USA02686

PATIENT
  Age: 37 Year
  Sex: Male

DRUGS (6)
  1. COZAAR [Suspect]
     Indication: HYPERTENSION
     Route: 048
     Dates: end: 20040125
  2. COZAAR [Suspect]
     Route: 048
     Dates: start: 20040219, end: 20040611
  3. COZAAR [Suspect]
     Route: 048
     Dates: start: 20041116, end: 20041117
  4. COZAAR [Suspect]
     Route: 048
     Dates: start: 20041118, end: 20041122
  5. FASTIC [Concomitant]
     Indication: DIABETES MELLITUS
     Route: 048
     Dates: start: 20041112
  6. KREMEZIN [Concomitant]
     Indication: RENAL FAILURE CHRONIC
     Route: 048
     Dates: start: 20041115

REACTIONS (4)
  - MALAISE [None]
  - MYALGIA [None]
  - RENAL FAILURE CHRONIC [None]
  - RHABDOMYOLYSIS [None]
